FAERS Safety Report 13011989 (Version 2)
Quarter: 2017Q3

REPORT INFORMATION
  Report Type: Report from Study
  Country: US (occurrence: US)
  Receive Date: 20161209
  Receipt Date: 20170714
  Transmission Date: 20171127
  Serious: Yes (Hospitalization)
  Sender: FDA-Public Use
  Company Number: US-AMGEN-USASL2016172365

PATIENT
  Sex: Male

DRUGS (2)
  1. ENBREL [Suspect]
     Active Substance: ETANERCEPT
     Indication: RHEUMATOID ARTHRITIS
     Dosage: 50 MG, QWK
     Route: 065
  2. ENBREL [Suspect]
     Active Substance: ETANERCEPT
     Dosage: UNK
     Route: 065
     Dates: start: 2016

REACTIONS (9)
  - Intestinal strangulation [Unknown]
  - Shoulder operation [Unknown]
  - Nerve conduction studies [Unknown]
  - Wrist surgery [Unknown]
  - Cardiac pacemaker insertion [Unknown]
  - Oesophagogastric fundoplasty [Unknown]
  - Peripheral nerve transposition [Unknown]
  - Product storage error [Unknown]
  - Gallbladder operation [Unknown]

NARRATIVE: CASE EVENT DATE: 2014
